FAERS Safety Report 9110418 (Version 1)
Quarter: 2013Q1

REPORT INFORMATION
  Report Type: Spontaneous
  Country: US (occurrence: US)
  Receive Date: 20130219
  Receipt Date: 20130219
  Transmission Date: 20140127
  Serious: No
  Sender: FDA-Public Use
  Company Number: US-BRISTOL-MYERS SQUIBB COMPANY-16927261

PATIENT
  Age: 20 Year
  Sex: Female
  Weight: 68.03 kg

DRUGS (1)
  1. ABATACEPT SUBQ INJECTION 125MG/ML [Suspect]
     Indication: JUVENILE IDIOPATHIC ARTHRITIS
     Dosage: 2 INJECTIONS,LAST INJECTION: 30AUG12
     Route: 058
     Dates: start: 20120823

REACTIONS (4)
  - Feeling hot [Recovering/Resolving]
  - Insomnia [Recovering/Resolving]
  - Palpitations [Recovering/Resolving]
  - Dyspnoea [Recovering/Resolving]
